FAERS Safety Report 7325604-8 (Version None)
Quarter: 2011Q1

REPORT INFORMATION
  Report Type: 
  Country: None (occurrence: None)
  Receive Date: 20110302
  Receipt Date: 20110221
  Transmission Date: 20110831
  Serious: Yes (Hospitalization, Other)
  Sender: FDA-Public Use
  Company Number: US-ELI_LILLY_AND_COMPANY-US201101007437

PATIENT
  Sex: Male
  Weight: 155.56 kg

DRUGS (13)
  1. PROTONIX [Concomitant]
     Dosage: 40 MG, DAILY (1/D)
  2. DIOVAN [Concomitant]
     Dosage: 320 MG, DAILY (1/D)
     Route: 048
  3. WELCHOL [Concomitant]
     Dosage: 3.75 G, DAILY (1/D)
  4. HUMALOG MIX 75/25 [Suspect]
     Indication: DIABETES MELLITUS
     Dosage: 150 U, 2/D
     Route: 058
     Dates: start: 19960101
  5. HUMALOG MIX 75/25 [Suspect]
     Dosage: 120 U, EACH EVENING
     Route: 058
     Dates: start: 20100304
  6. HUMALOG [Suspect]
     Indication: DIABETES MELLITUS
     Dosage: 50 U, 2/D
     Dates: start: 19960101
  7. NITROGLYCERIN [Concomitant]
     Dosage: 0.4 MG, AS NEEDED
     Route: 060
  8. FISH OIL [Concomitant]
     Dosage: 1000 MG, DAILY (1/D)
  9. DERMADEX [Concomitant]
     Dosage: 20 MG, DAILY (1/D)
     Route: 048
  10. NORVASC [Concomitant]
     Dosage: 5 MG, DAILY (1/D)
  11. SYNTHROID [Concomitant]
     Dosage: 50 MG, DAILY (1/D)
     Route: 048
  12. ASA [Concomitant]
     Dosage: 325 MG, DAILY (1/D)
  13. HUMALOG MIX 75/25 [Suspect]
     Dosage: 140 U, EACH MORNING
     Route: 058
     Dates: start: 20100304

REACTIONS (5)
  - GASTROINTESTINAL HAEMORRHAGE [None]
  - BLOOD GLUCOSE INCREASED [None]
  - VISUAL ACUITY REDUCED [None]
  - DRUG INEFFECTIVE [None]
  - PEPTIC ULCER [None]
